FAERS Safety Report 10045437 (Version 2)
Quarter: 2014Q3

REPORT INFORMATION
  Report Type: Spontaneous
  Country: IT (occurrence: IT)
  Receive Date: 20140328
  Receipt Date: 20140721
  Transmission Date: 20150326
  Serious: Yes (Other)
  Sender: FDA-Public Use
  Company Number: IT-SHIRE-IT201400773

PATIENT
  Age: 41 Year
  Sex: Male

DRUGS (3)
  1. MESAVANCOL [Suspect]
     Active Substance: MESALAMINE
     Indication: COLITIS ULCERATIVE
     Dosage: 4.8 G, 1X/DAY:QD
     Route: 048
     Dates: start: 20140129, end: 20140307
  2. FLAGYL [Suspect]
     Active Substance: METRONIDAZOLE\METRONIDAZOLE HYDROCHLORIDE
     Indication: AMOEBIASIS
     Dosage: 2000 MG, 1X/DAY:QD
     Route: 048
     Dates: start: 20140219, end: 20140222
  3. HUMATIN [Suspect]
     Active Substance: PAROMOMYCIN SULFATE
     Indication: AMOEBIASIS
     Dosage: 1500 MG, 1X/DAY:QD
     Route: 048
     Dates: start: 20140226, end: 20140228

REACTIONS (6)
  - Transaminases increased [Recovering/Resolving]
  - Vomiting [Recovering/Resolving]
  - Decreased appetite [Recovering/Resolving]
  - Somnolence [Recovering/Resolving]
  - Off label use [Recovered/Resolved]
  - Blood triglycerides increased [Recovering/Resolving]

NARRATIVE: CASE EVENT DATE: 20140129
